FAERS Safety Report 8709271 (Version 2)
Quarter: 2012Q4

REPORT INFORMATION
  Report Type: 
  Country: US (occurrence: US)
  Receive Date: 20120806
  Receipt Date: 20121130
  Transmission Date: 20130627
  Serious: Yes (Other)
  Sender: FDA-Public Use
  Company Number: US-ACTELION-A-US2012-69435

PATIENT
  Age: 26 Year
  Sex: Female

DRUGS (4)
  1. TRACLEER [Suspect]
     Indication: PULMONARY ARTERIAL HYPERTENSION
     Dosage: UNK
     Route: 048
  2. SILDENAFIL [Concomitant]
  3. COUMADIN [Concomitant]
  4. SEASONIQUE [Concomitant]

REACTIONS (5)
  - Pregnancy [Unknown]
  - Abortion induced [Recovered/Resolved]
  - Female sterilisation [Unknown]
  - Pregnancy on oral contraceptive [None]
  - Maternal exposure during pregnancy [None]
